FAERS Safety Report 6473826-0 (Version None)
Quarter: 2009Q4

REPORT INFORMATION
  Report Type: 
  Country: None (occurrence: None)
  Receive Date: 20091204
  Receipt Date: 20091126
  Transmission Date: 20100525
  Serious: Yes (Other)
  Sender: FDA-Public Use
  Company Number: ES-ROCHE-671196

PATIENT
  Age: 51 Year
  Sex: Male

DRUGS (6)
  1. TAMIFLU [Suspect]
     Indication: INFLUENZA
     Route: 048
     Dates: start: 20091027, end: 20091030
  2. PROGRAF [Concomitant]
  3. IMUREL [Concomitant]
  4. ZAMENE [Concomitant]
  5. OMEPRAZOLE [Concomitant]
  6. OMEPRAZOLE [Concomitant]
     Dosage: DOSE INCREASED

REACTIONS (2)
  - GASTRITIS [None]
  - HAEMATEMESIS [None]
